FAERS Safety Report 12213289 (Version 3)
Quarter: 2016Q2

REPORT INFORMATION
  Report Type: Spontaneous
  Country: FI (occurrence: FI)
  Receive Date: 20160328
  Receipt Date: 20160414
  Transmission Date: 20160815
  Serious: Yes (Life-Threatening)
  Sender: FDA-Public Use
  Company Number: PHHY2016FI040296

PATIENT
  Age: 71 Year
  Sex: Female

DRUGS (12)
  1. PENTASA [Concomitant]
     Active Substance: MESALAMINE
     Indication: COLITIS ULCERATIVE
     Dosage: 1 G, QD
     Route: 054
  2. ESOMEPRAZOL ORION [Concomitant]
     Indication: GASTROOESOPHAGEAL REFLUX DISEASE
     Dosage: 20 MG, QD
     Route: 048
     Dates: end: 20160226
  3. TIBOLON ORIFARM [Concomitant]
     Indication: HYPERHIDROSIS
     Dosage: 1.5 MG, QD
     Route: 048
     Dates: start: 2014
  4. PANADOL FORTE [Concomitant]
     Active Substance: ACETAMINOPHEN\CAFFEINE
     Indication: PAIN
     Dosage: UNK UNK, PRN
     Route: 065
  5. ENALAPRIL [Concomitant]
     Active Substance: ENALAPRIL
     Indication: HYPERTENSION
     Dosage: 1 DF, QD
     Route: 048
     Dates: start: 20151205, end: 20160209
  6. ASACOL [Concomitant]
     Active Substance: MESALAMINE
     Indication: COLITIS ULCERATIVE
     Dosage: 800 MG, BID
     Route: 048
     Dates: start: 1990
  7. VAGIFEM [Concomitant]
     Active Substance: ESTRADIOL
     Indication: URINARY TRACT DISORDER
     Dosage: 10 UG, QD
     Route: 067
  8. NASONEX [Concomitant]
     Active Substance: MOMETASONE FUROATE
     Indication: RHINITIS
     Dosage: 1 DF, QD
     Route: 045
  9. CALCICHEW-D3 FORTE [Concomitant]
     Active Substance: CALCIUM\CHOLECALCIFEROL
     Indication: COELIAC DISEASE
     Dosage: 1 DF (500 MG/10 MCG), QD
     Route: 048
  10. TIBOLON ORIFARM [Concomitant]
     Indication: MENOPAUSAL SYMPTOMS
  11. ROSUVASTATIN ACTAVIS [Concomitant]
     Indication: LIPIDS ABNORMAL
     Dosage: 10 MG, QD
     Route: 048
  12. DIOVAN [Suspect]
     Active Substance: VALSARTAN
     Indication: HYPERTENSION
     Dosage: 80 MG, ONCE/SINGLE
     Route: 048
     Dates: start: 20160109, end: 20160109

REACTIONS (9)
  - Lip swelling [Recovered/Resolved]
  - Wound [Recovered/Resolved]
  - Skin exfoliation [Recovered/Resolved]
  - Feeling abnormal [Recovered/Resolved]
  - Cheilitis [Recovered/Resolved]
  - Dyspnoea [Recovered/Resolved]
  - Hypersensitivity [Recovered/Resolved]
  - Mouth swelling [Recovered/Resolved]
  - Swelling face [Recovered/Resolved]

NARRATIVE: CASE EVENT DATE: 20160109
